FAERS Safety Report 6638531-6 (Version None)
Quarter: 2010Q1

REPORT INFORMATION
  Report Type: 
  Country: None (occurrence: None)
  Receive Date: 20100317
  Receipt Date: 20100305
  Transmission Date: 20100710
  Serious: Yes (Disabling, Other)
  Sender: FDA-Public Use
  Company Number: TR-ELI_LILLY_AND_COMPANY-TR201003001993

PATIENT

DRUGS (3)
  1. HUMULIN R [Suspect]
     Dosage: 4 U, DAILY (1/D)
     Route: 064
     Dates: end: 20100208
  2. HUMULIN N [Suspect]
     Dosage: 4 IU, DAILY (1/D)
     Route: 064
     Dates: end: 20100208
  3. METHYLDOPA [Concomitant]
     Dosage: UNK, UNKNOWN
     Route: 064

REACTIONS (5)
  - DEAFNESS [None]
  - DRUG EXPOSURE DURING PREGNANCY [None]
  - FOETAL MACROSOMIA [None]
  - MONOPLEGIA [None]
  - NERVE INJURY [None]
